FAERS Safety Report 6389676-X (Version None)
Quarter: 2009Q4

REPORT INFORMATION
  Report Type: 
  Country: None (occurrence: None)
  Receive Date: 20091006
  Receipt Date: 20090930
  Transmission Date: 20100525
  Serious: Yes (Death, Other)
  Sender: FDA-Public Use
  Company Number: FR-BRISTOL-MYERS SQUIBB COMPANY-14698054

PATIENT
  Age: 62 Year
  Sex: Male

DRUGS (6)
  1. CETUXIMAB [Suspect]
     Indication: HEAD AND NECK CANCER
     Route: 042
     Dates: start: 20080615, end: 20080715
  2. CARBOPLATIN [Suspect]
     Indication: HEAD AND NECK CANCER
     Route: 042
     Dates: start: 20080623, end: 20080718
  3. FLUOROURACIL [Suspect]
     Indication: HEAD AND NECK CANCER
     Route: 042
     Dates: start: 20080623, end: 20080718
  4. RADIOTHERAPY [Suspect]
     Indication: HEAD AND NECK CANCER
     Dosage: DURATION OF THERAPY:50DAYS
     Route: 065
     Dates: start: 20080623, end: 20080812
  5. PLAVIX [Concomitant]
     Dates: end: 20080903
  6. ASPEGIC 1000 [Concomitant]
     Dates: start: 20080927

REACTIONS (4)
  - DERMATITIS [None]
  - GASTROINTESTINAL HAEMORRHAGE [None]
  - MUCOSAL INFLAMMATION [None]
  - RESPIRATORY DISORDER [None]
